FAERS Safety Report 4364448-6 (Version None)
Quarter: 2004Q2

REPORT INFORMATION
  Report Type: 
  Country: None (occurrence: None)
  Receive Date: 20040525
  Receipt Date: 20040127
  Transmission Date: 20050107
  Serious: Yes (Other)
  Sender: FDA-Public Use
  Company Number: ES-GLAXOSMITHKLINE-B0321501A

PATIENT
  Age: 50 Year
  Sex: Male

DRUGS (1)
  1. ZYNTABAC [Suspect]
     Dates: start: 20031130, end: 20031218

REACTIONS (1)
  - PARKINSON'S DISEASE [None]
